FAERS Safety Report 16123769 (Version 1)
Quarter: 2019Q1

REPORT INFORMATION
  Report Type: Spontaneous
  Country: NL (occurrence: NL)
  Receive Date: 20190327
  Receipt Date: 20190327
  Transmission Date: 20190418
  Serious: Yes (Other)
  Sender: FDA-Public Use
  Company Number: NL-MYLANLABS-2019M1027032

PATIENT
  Age: 63 Year
  Sex: Male

DRUGS (8)
  1. VASELINE                           /00473501/ [Concomitant]
     Active Substance: PARAFFIN
     Dosage: GEBRUIK NA BEHOEFTE
     Dates: start: 20110411
  2. BISOPROLOL [Concomitant]
     Active Substance: BISOPROLOL
     Dosage: 2DD1
     Dates: start: 20171222
  3. SOLIFENACIN W/TAMSULOSIN [Concomitant]
     Dosage: 1DD1
     Dates: start: 20171020
  4. PERINDOPRIL [Concomitant]
     Active Substance: PERINDOPRIL
     Dosage: 1DD1
     Dates: start: 20171222
  5. CARBASALAATCALCIUM [Concomitant]
     Active Substance: CARBASPIRIN CALCIUM
     Dosage: 1DD1
     Dates: start: 20171222
  6. TICAGRELOR. [Concomitant]
     Active Substance: TICAGRELOR
     Dosage: 1DD1
     Dates: start: 20171222
  7. ATORVASTATINE                      /01326101/ [Concomitant]
     Active Substance: ATORVASTATIN
     Dosage: 1DD1
     Dates: start: 20171222
  8. PANTOPRAZOLE [Suspect]
     Active Substance: PANTOPRAZOLE
     Indication: GASTROOESOPHAGEAL REFLUX DISEASE
     Dosage: 1X PER DAG 1 TABLET
     Route: 048
     Dates: start: 20140819, end: 20181016

REACTIONS (2)
  - Hyponatraemia [Recovering/Resolving]
  - Inappropriate antidiuretic hormone secretion [Recovering/Resolving]

NARRATIVE: CASE EVENT DATE: 20181016
